FAERS Safety Report 11396875 (Version 10)
Quarter: 2016Q4

REPORT INFORMATION
  Report Type: Spontaneous
  Country: US (occurrence: US)
  Receive Date: 20150819
  Receipt Date: 20161002
  Transmission Date: 20170206
  Serious: No
  Sender: FDA-Public Use
  Company Number: US-ASTRAZENECA-2015SE72577

PATIENT
  Age: 18433 Day
  Sex: Female
  Weight: 146.5 kg

DRUGS (22)
  1. OTHER MEDICATION [Concomitant]
     Active Substance: UNSPECIFIED INGREDIENT
     Indication: HYPERTENSION
  2. TYLENOL [Concomitant]
     Active Substance: ACETAMINOPHEN
     Indication: HEADACHE
  3. OTC ALLERGY PILL [Concomitant]
     Indication: HYPERSENSITIVITY
  4. UNKNOWN CAPSULE [Concomitant]
  5. ACID REFLUX PILL [Concomitant]
     Active Substance: UNSPECIFIED INGREDIENT
     Indication: ABDOMINAL DISCOMFORT
  6. BYDUREON [Suspect]
     Active Substance: EXENATIDE
     Indication: TYPE 2 DIABETES MELLITUS
     Route: 058
     Dates: start: 201507
  7. IRON VTAMIN [Concomitant]
     Dosage: BID
     Route: 048
  8. CALCIUM [Concomitant]
     Active Substance: CALCIUM
  9. OTHER MEDICATION [Concomitant]
     Active Substance: UNSPECIFIED INGREDIENT
     Indication: DIARRHOEA
  10. VITAMIN C [Concomitant]
     Active Substance: ASCORBIC ACID
  11. VITAMIN D [Concomitant]
     Active Substance: CHOLECALCIFEROL
  12. BYDUREON [Suspect]
     Active Substance: EXENATIDE
     Indication: WEIGHT DECREASED
     Route: 058
     Dates: start: 201507
  13. ANTIBIOTICS [Concomitant]
     Active Substance: UNSPECIFIED INGREDIENT
     Indication: KIDNEY INFECTION
     Route: 048
  14. GLYBURIDE. [Concomitant]
     Active Substance: GLYBURIDE
     Indication: TYPE 2 DIABETES MELLITUS
  15. ACTOS [Concomitant]
     Active Substance: PIOGLITAZONE HYDROCHLORIDE
     Indication: TYPE 2 DIABETES MELLITUS
     Dosage: AT NIGHT
  16. SUGAR PILLS [Concomitant]
     Dosage: AT DINNER TIME
  17. BYDUREON [Suspect]
     Active Substance: EXENATIDE
     Indication: APPETITE DISORDER
     Route: 058
     Dates: start: 201507
  18. ANTIBIOTICS [Concomitant]
     Active Substance: UNSPECIFIED INGREDIENT
     Indication: CYSTITIS
     Route: 048
  19. IRON PILL [Concomitant]
     Active Substance: IRON
  20. HIGH BLOOD PRESSURE/BLOOD PRESSURE PILL [Concomitant]
     Indication: HYPERTENSION
     Dosage: DAILY
  21. METFORMIN [Concomitant]
     Active Substance: METFORMIN HYDROCHLORIDE
     Indication: TYPE 2 DIABETES MELLITUS
     Dosage: 850
     Route: 048
  22. VITAMIN B12 [Concomitant]
     Active Substance: CYANOCOBALAMIN

REACTIONS (17)
  - Injection site pain [Unknown]
  - Underdose [Unknown]
  - Injection site haemorrhage [Recovered/Resolved]
  - Injection site extravasation [Unknown]
  - Gastrooesophageal reflux disease [Unknown]
  - Injection site discharge [Unknown]
  - Haemorrhage [Recovered/Resolved]
  - Hypertension [Unknown]
  - Injection site mass [Recovered/Resolved]
  - Gastric haemorrhage [Recovered/Resolved]
  - Injection site discolouration [Recovered/Resolved]
  - Intentional product misuse [Unknown]
  - Weight decreased [Unknown]
  - Product use issue [Unknown]
  - Off label use [Unknown]
  - Blood iron decreased [Unknown]
  - Decreased appetite [Unknown]

NARRATIVE: CASE EVENT DATE: 20150911
